FAERS Safety Report 10219758 (Version 1)
Quarter: 2014Q2

REPORT INFORMATION
  Report Type: Report from Study
  Country: IT (occurrence: IT)
  Receive Date: 20140605
  Receipt Date: 20140605
  Transmission Date: 20141212
  Serious: Yes (Other)
  Sender: FDA-Public Use
  Company Number: IT-UCBSA-2014000367

PATIENT
  Age: 58 Year
  Sex: Female
  Weight: 73.5 kg

DRUGS (4)
  1. CERTOLIZUMAB PEGOL RA [Suspect]
     Indication: RHEUMATOID ARTHRITIS
     Route: 058
  2. EUTIROX [Concomitant]
     Indication: HYPOTHYROIDISM
     Dosage: 75 MEQ, UNK
     Route: 048
     Dates: start: 2006
  3. EUTIROX [Concomitant]
     Dosage: 100 MG, UNK
     Route: 048
     Dates: start: 2006
  4. METHOTREXATE [Concomitant]
     Indication: RHEUMATOID ARTHRITIS
     Dosage: 13 MG, WEEKLY (QW)
     Route: 058
     Dates: start: 2006

REACTIONS (1)
  - Sinus disorder [Not Recovered/Not Resolved]
